FAERS Safety Report 21215444 (Version 1)
Quarter: 2022Q3

REPORT INFORMATION
  Report Type: Spontaneous
  Country: US (occurrence: US)
  Receive Date: 20220816
  Receipt Date: 20220816
  Transmission Date: 20221026
  Serious: Yes (Hospitalization, Other)
  Sender: FDA-Public Use
  Company Number: US-ALVOGEN-2022-ALVOGEN-120736

PATIENT
  Age: 91 Year
  Sex: Male

DRUGS (1)
  1. NITROFURANTOIN [Suspect]
     Active Substance: NITROFURANTOIN
     Indication: Aerococcus urinae infection
     Route: 048

REACTIONS (10)
  - Drug ineffective [Unknown]
  - Urinary tract infection bacterial [Recovering/Resolving]
  - Condition aggravated [Recovering/Resolving]
  - Back pain [Unknown]
  - Gait disturbance [Unknown]
  - Hydronephrosis [Unknown]
  - Prostatomegaly [Unknown]
  - Metastases to bone [Unknown]
  - Urinary retention [Recovering/Resolving]
  - Urinary incontinence [Recovering/Resolving]
